FAERS Safety Report 4447647-4 (Version None)
Quarter: 2004Q3

REPORT INFORMATION
  Report Type: 
  Country: None (occurrence: None)
  Receive Date: 20040913
  Receipt Date: 20040903
  Transmission Date: 20050211
  Serious: Yes (Hospitalization)
  Sender: FDA-Public Use
  Company Number: GB-BRISTOL-MYERS SQUIBB COMPANY-12694378

PATIENT

DRUGS (2)
  1. METFORMIN HCL [Suspect]
     Route: 048
  2. ALCOHOL [Interacting]

REACTIONS (4)
  - ALCOHOL INTERACTION [None]
  - ALCOHOL POISONING [None]
  - DRUG INTERACTION [None]
  - LACTIC ACIDOSIS [None]
